FAERS Safety Report 21714687 (Version 1)
Quarter: 2022Q4

REPORT INFORMATION
  Report Type: Spontaneous
  Country: US (occurrence: None)
  Receive Date: 20221210
  Receipt Date: 20221210
  Transmission Date: 20230112
  Serious: Yes (unspecified)
  Sender: FDA-Public Use
  Company Number: None

PATIENT
  Age: 78 Year
  Sex: Female

DRUGS (3)
  1. CLOZAPINE [Suspect]
     Active Substance: CLOZAPINE
     Indication: Schizophrenia
  2. CLOZAPINE [Concomitant]
     Active Substance: CLOZAPINE
  3. CLOZAPINE [Concomitant]
     Active Substance: CLOZAPINE

REACTIONS (6)
  - Product dispensing issue [None]
  - Inappropriate schedule of product administration [None]
  - Illogical thinking [None]
  - Victim of abuse [None]
  - Drug monitoring procedure incorrectly performed [None]
  - Impaired quality of life [None]

NARRATIVE: CASE EVENT DATE: 20221126
